FAERS Safety Report 13688074 (Version 1)
Quarter: 2017Q2

REPORT INFORMATION
  Report Type: Spontaneous
  Country: US (occurrence: US)
  Receive Date: 20170626
  Receipt Date: 20170626
  Transmission Date: 20170830
  Serious: No
  Sender: FDA-Public Use
  Company Number: US-USVNA-000003

PATIENT
  Age: 81 Year
  Sex: Female
  Weight: 45.36 kg

DRUGS (1)
  1. OLOPATADINE/OLOPATADINE HYDROCHLORIDE [Suspect]
     Active Substance: OLOPATADINE
     Indication: HYPERSENSITIVITY
     Dosage: STRENGTH: 0.1%, ONE DROP IN EACH EYE TWICE DAILY FOR ALLERGIES
     Route: 047
     Dates: start: 2016

REACTIONS (3)
  - Eye pain [Recovered/Resolved]
  - Eye irritation [Recovered/Resolved]
  - Product substitution issue [Unknown]

NARRATIVE: CASE EVENT DATE: 2016
